FAERS Safety Report 5084617-X (Version None)
Quarter: 2006Q3

REPORT INFORMATION
  Report Type: 
  Country: None (occurrence: None)
  Receive Date: 20060821
  Receipt Date: 20040930
  Transmission Date: 20061208
  Serious: Yes (Hospitalization)
  Sender: FDA-Public Use
  Company Number: US-ROCHE-381920

PATIENT
  Age: 21 Year
  Sex: Female
  Weight: 59 kg

DRUGS (3)
  1. ACCUTANE [Suspect]
     Route: 048
     Dates: start: 19920615, end: 19920615
  2. ACCUTANE [Suspect]
     Route: 048
     Dates: start: 19920615
  3. ACCUTANE [Suspect]
     Route: 048
     Dates: start: 20031031, end: 20031106

REACTIONS (18)
  - APPENDICITIS [None]
  - CHOLECYSTECTOMY [None]
  - CHOLECYSTITIS [None]
  - COLITIS [None]
  - COLITIS ULCERATIVE [None]
  - CROHN'S DISEASE [None]
  - ENDOMETRIOSIS [None]
  - GASTRITIS EROSIVE [None]
  - HIATUS HERNIA [None]
  - HYPOTHYROIDISM [None]
  - ILEUS [None]
  - INFLAMMATORY BOWEL DISEASE [None]
  - INTESTINAL HAEMORRHAGE [None]
  - OVARIAN CYST [None]
  - OVARIAN CYST RUPTURED [None]
  - PHARYNGOLARYNGEAL PAIN [None]
  - RECTAL HAEMORRHAGE [None]
  - VAGINAL ULCERATION [None]
